FAERS Safety Report 24827750 (Version 1)
Quarter: 2025Q1

REPORT INFORMATION
  Report Type: Spontaneous
  Country: GB (occurrence: GB)
  Receive Date: 20250109
  Receipt Date: 20250109
  Transmission Date: 20250408
  Serious: Yes (Life-Threatening, Hospitalization, Disabling, Other)
  Sender: BAYER HEALTHCARE PHARMACEUTICALS INC.
  Company Number: None

PATIENT
  Age: 72 Year
  Sex: Female
  Weight: 76 kg

DRUGS (1)
  1. ESTRADIOL VALERATE [Suspect]
     Active Substance: ESTRADIOL VALERATE
     Indication: Hormone replacement therapy
     Dosage: 1 MG, QD
     Route: 062
     Dates: end: 20250105

REACTIONS (6)
  - Pulmonary embolism [Recovering/Resolving]
  - Cerebrovascular accident [None]
  - Fall [None]
  - Diplopia [None]
  - Muscular weakness [None]
  - Headache [None]

NARRATIVE: CASE EVENT DATE: 20250104
